FAERS Safety Report 15307835 (Version 1)
Quarter: 2018Q3

REPORT INFORMATION
  Report Type: Spontaneous
  Country: GR (occurrence: GR)
  Receive Date: 20180822
  Receipt Date: 20180822
  Transmission Date: 20181010
  Serious: Yes (Hospitalization)
  Sender: FDA-Public Use
  Company Number: GR-SA-2018SA208711

PATIENT
  Age: 14 Year
  Sex: Male

DRUGS (2)
  1. IRBESARTAN. [Suspect]
     Active Substance: IRBESARTAN
  2. RAMIPRIL. [Suspect]
     Active Substance: RAMIPRIL

REACTIONS (3)
  - Haematuria [Unknown]
  - Nephritis [Unknown]
  - Albuminuria [Unknown]
